FAERS Safety Report 9301639 (Version 2)
Quarter: 2013Q2

REPORT INFORMATION
  Report Type: Spontaneous
  Country: PH (occurrence: PH)
  Receive Date: 20130521
  Receipt Date: 20130530
  Transmission Date: 20140414
  Serious: Yes (Death)
  Sender: FDA-Public Use
  Company Number: PH-009507513-1305PHL010813

PATIENT
  Age: 48 Year
  Sex: Female

DRUGS (1)
  1. JANUMET [Suspect]
     Dosage: 1 TABLET, TWICE A DAY (1000 MG)
     Route: 048

REACTIONS (2)
  - Disease complication [Fatal]
  - Blood glucose increased [Fatal]
